FAERS Safety Report 15886544 (Version 2)
Quarter: 2019Q2

REPORT INFORMATION
  Report Type: Report from Study
  Country: US (occurrence: US)
  Receive Date: 20190129
  Receipt Date: 20190603
  Transmission Date: 20190711
  Serious: Yes (Hospitalization)
  Sender: FDA-Public Use
  Company Number: US-ACTELION-A-US2016-138102

PATIENT
  Sex: Female
  Weight: 70.3 kg

DRUGS (2)
  1. ELIQUIS [Concomitant]
     Active Substance: APIXABAN
  2. OPSUMIT [Suspect]
     Active Substance: MACITENTAN
     Indication: PULMONARY HYPERTENSION
     Dosage: 10 MG, QD
     Route: 048
     Dates: start: 20160527

REACTIONS (7)
  - Abdominal discomfort [Unknown]
  - Infected bite [Unknown]
  - Product dose omission [Unknown]
  - Hospitalisation [Unknown]
  - Gingivitis [Unknown]
  - Weight increased [Unknown]
  - Dyspnoea [Unknown]
